FAERS Safety Report 4806819-7 (Version None)
Quarter: 2005Q4

REPORT INFORMATION
  Report Type: 
  Country: None (occurrence: None)
  Receive Date: 20051019
  Receipt Date: 20051006
  Transmission Date: 20060501
  Serious: Yes (Life-Threatening)
  Sender: FDA-Public Use
  Company Number: 2005139012

PATIENT
  Age: 15 Year
  Sex: Female

DRUGS (3)
  1. VFEND [Suspect]
     Indication: ILL-DEFINED DISORDER
     Dosage: 600 MG (300 MG, 2 IN 1 D)
     Dates: start: 20050925, end: 20050929
  2. AMBISOME [Concomitant]
  3. CASPOFUNGIN (CASPOFUGIN) [Concomitant]

REACTIONS (6)
  - CARDIAC ARREST [None]
  - ELECTROCARDIOGRAM QT PROLONGED [None]
  - HYPOMAGNESAEMIA [None]
  - MUCORMYCOSIS [None]
  - TORSADE DE POINTES [None]
  - VENTRICULAR FIBRILLATION [None]
